FAERS Safety Report 21105759 (Version 1)
Quarter: 2022Q3

REPORT INFORMATION
  Report Type: Report from Study
  Country: AR (occurrence: AR)
  Receive Date: 20220720
  Receipt Date: 20220720
  Transmission Date: 20221026
  Serious: Yes (Other)
  Sender: FDA-Public Use
  Company Number: AR-NOVARTISPH-NVSC2022AR161572

PATIENT
  Age: 58 Year
  Sex: Female

DRUGS (2)
  1. PIQRAY [Suspect]
     Active Substance: ALPELISIB
     Indication: Breast cancer metastatic
     Dosage: 300 MG, QD
     Route: 048
     Dates: start: 20220709
  2. FULVESTRANT [Suspect]
     Active Substance: FULVESTRANT
     Indication: Breast cancer metastatic
     Dosage: 250 MG, QD
     Route: 058
     Dates: start: 20220608

REACTIONS (4)
  - Pleural effusion [Unknown]
  - Dyspnoea [Unknown]
  - Asthenia [Unknown]
  - Incorrect dose administered [Unknown]

NARRATIVE: CASE EVENT DATE: 20220613
